FAERS Safety Report 4548869-4 (Version None)
Quarter: 2005Q1

REPORT INFORMATION
  Report Type: 
  Country: None (occurrence: None)
  Receive Date: 20050110
  Receipt Date: 20041213
  Transmission Date: 20050727
  Serious: Yes (Hospitalization)
  Sender: FDA-Public Use
  Company Number: IT-ABBOTT-04P-083-0283851-00

PATIENT
  Sex: Male

DRUGS (2)
  1. FULCRO [Suspect]
     Indication: DRUG USE FOR UNKNOWN INDICATION
     Route: 048
     Dates: start: 20010630, end: 20041125
  2. SERETIDE MITE [Concomitant]
     Indication: DRUG USE FOR UNKNOWN INDICATION
     Dosage: 50/500
     Dates: start: 20020630, end: 20041126

REACTIONS (3)
  - RENAL FAILURE [None]
  - RENAL IMPAIRMENT [None]
  - RHABDOMYOLYSIS [None]
